FAERS Safety Report 15961946 (Version 1)
Quarter: 2019Q1

REPORT INFORMATION
  Report Type: Spontaneous
  Country: US (occurrence: US)
  Receive Date: 20190214
  Receipt Date: 20190214
  Transmission Date: 20190417
  Serious: Yes (Death)
  Sender: FDA-Public Use
  Company Number: US-HIKMA PHARMACEUTICALS USA INC.-US-H14001-19-00998

PATIENT

DRUGS (5)
  1. FLUOROURACIL. [Suspect]
     Active Substance: FLUOROURACIL
     Indication: BILIARY CANCER METASTATIC
     Route: 042
  2. OXALIPLATIN. [Suspect]
     Active Substance: OXALIPLATIN
     Indication: BILIARY CANCER METASTATIC
     Route: 042
  3. IRINOTECAN [Suspect]
     Active Substance: IRINOTECAN
     Indication: BILIARY CANCER METASTATIC
     Route: 042
  4. LEUCOVORIN. [Suspect]
     Active Substance: LEUCOVORIN
     Indication: BILIARY CANCER METASTATIC
     Route: 042
  5. PEGFILGRASTIM [Suspect]
     Active Substance: PEGFILGRASTIM
     Indication: PROPHYLAXIS
     Route: 058

REACTIONS (1)
  - Multiple organ dysfunction syndrome [Fatal]
